FAERS Safety Report 8144656-9 (Version None)
Quarter: 2012Q1

REPORT INFORMATION
  Report Type: 
  Country: None (occurrence: None)
  Receive Date: 20120214
  Receipt Date: 20120208
  Transmission Date: 20120608
  Serious: Yes (Disabling)
  Sender: FDA-Public Use
  Company Number: USA/USA/12/0022975

PATIENT
  Age: 72 Year
  Sex: Female

DRUGS (5)
  1. LEVOFLOXACIN [Suspect]
     Indication: SINUSITIS
     Dosage: 500 MG, 1 IN 1 D, ORAL
     Route: 048
     Dates: start: 20120121
  2. LEVOFLOXACIN [Suspect]
     Indication: SINUSITIS
     Dosage: 500 MG, 1 IN 1 D, ORAL
     Route: 048
     Dates: start: 20120114
  3. LEVOFLOXACIN [Suspect]
     Indication: SINUSITIS
     Dosage: 500 MG, 1 IN 1 D, ORAL
     Route: 048
     Dates: start: 20120128, end: 20120130
  4. NASONEX [Concomitant]
  5. ASTEPRO (AZELASTINE HYDROCHLORIDE) [Concomitant]

REACTIONS (2)
  - BEDRIDDEN [None]
  - MYALGIA [None]
